FAERS Safety Report 6932087-6 (Version None)
Quarter: 2010Q3

REPORT INFORMATION
  Report Type: 
  Country: None (occurrence: None)
  Receive Date: 20100819
  Receipt Date: 20100811
  Transmission Date: 20110219
  Serious: Yes (Hospitalization)
  Sender: FDA-Public Use
  Company Number: A0862075A

PATIENT
  Age: 72 Year
  Sex: Female

DRUGS (1)
  1. AVANDIA [Suspect]
     Dosage: 4MG PER DAY
     Route: 065
     Dates: start: 20030701, end: 20090101

REACTIONS (6)
  - CARDIAC DISORDER [None]
  - CARDIAC FAILURE CONGESTIVE [None]
  - CATHETERISATION CARDIAC [None]
  - CONDITION AGGRAVATED [None]
  - CORONARY ARTERIAL STENT INSERTION [None]
  - ISCHAEMIC CARDIOMYOPATHY [None]
